FAERS Safety Report 7021231-0 (Version None)
Quarter: 2010Q3

REPORT INFORMATION
  Report Type: 
  Country: None (occurrence: None)
  Receive Date: 20100929
  Receipt Date: 20100915
  Transmission Date: 20110219
  Serious: Yes (Other)
  Sender: FDA-Public Use
  Company Number: GB-PFIZER INC-2010117267

PATIENT
  Age: 37 Year
  Sex: Male

DRUGS (8)
  1. CABERGOLINE [Suspect]
     Indication: PARKINSON'S DISEASE
     Dosage: 2 MG, DAY
  2. CABERGOLINE [Suspect]
     Dosage: 4 MG, DAY
  3. CABERGOLINE [Suspect]
     Dosage: 8 MG, DAY
  4. LEVODOPA [Suspect]
     Dosage: 300 MG, DAY
  5. LEVODOPA [Suspect]
     Dosage: 900 MG, DAY
  6. ROTIGOTINE [Suspect]
     Dosage: 4 MG, DAY
  7. BENZATROPINE [Concomitant]
     Dosage: UNK
  8. TRIHEXYPHENIDYL [Concomitant]
     Dosage: 10 MG, DAY

REACTIONS (2)
  - DOPAMINE DYSREGULATION SYNDROME [None]
  - DRUG ABUSE [None]
